FAERS Safety Report 5078446-0 (Version None)
Quarter: 2006Q3

REPORT INFORMATION
  Report Type: 
  Country: None (occurrence: None)
  Receive Date: 20060808
  Receipt Date: 20060721
  Transmission Date: 20061208
  Serious: Yes (Hospitalization)
  Sender: FDA-Public Use
  Company Number: FR200606005461

PATIENT
  Age: 62 Year
  Sex: Female
  Weight: 100 kg

DRUGS (9)
  1. FORTEO [Suspect]
     Indication: OSTEOPOROSIS
     Dosage: 20 UG, DAILY (1/D), SUBCUTANEOUS
     Route: 058
     Dates: start: 20051028
  2. FORTEO PEN (FORTEO PEN) PEN, DISPOSABLE [Concomitant]
  3. PROZAC [Concomitant]
  4. TRAMADOL HCL [Concomitant]
  5. OROCAL VITAMIN D (CALCIUM CARBONATE, COLECALCIFEROL) [Concomitant]
  6. ACETAMINOPHEN [Concomitant]
  7. AERIUS (DESLORATADINE) [Concomitant]
  8. INSULIN [Concomitant]
  9. LEVOTHYROXINE SODIUM [Concomitant]

REACTIONS (1)
  - BREAST CANCER FEMALE [None]
